FAERS Safety Report 10314375 (Version 2)
Quarter: 2014Q3

REPORT INFORMATION
  Report Type: Spontaneous
  Country: US (occurrence: US)
  Receive Date: 20140718
  Receipt Date: 20140828
  Transmission Date: 20150326
  Serious: Yes (Other)
  Sender: FDA-Public Use
  Company Number: US-PFIZER INC-2014199051

PATIENT
  Age: 75 Year
  Sex: Male

DRUGS (1)
  1. NORVASC [Suspect]
     Active Substance: AMLODIPINE BESYLATE
     Indication: HYPERTENSION
     Dosage: UNK
     Route: 048

REACTIONS (5)
  - Oedema peripheral [Unknown]
  - Joint swelling [Unknown]
  - Renal impairment [Unknown]
  - Arthralgia [Recovered/Resolved with Sequelae]
  - Chondrocalcinosis pyrophosphate [Recovered/Resolved with Sequelae]
